FAERS Safety Report 11349631 (Version 3)
Quarter: 2015Q3

REPORT INFORMATION
  Report Type: Spontaneous
  Country: US (occurrence: US)
  Receive Date: 20150805
  Receipt Date: 20150924
  Transmission Date: 20151125
  Serious: Yes (Hospitalization)
  Sender: FDA-Public Use
  Company Number: OTH-PAT-2015014

PATIENT
  Age: 8 Month
  Sex: Female
  Weight: 2.4 kg

DRUGS (3)
  1. CYSTADANE [Suspect]
     Active Substance: BETAINE
     Indication: VITAMIN B12 DEFICIENCY
     Route: 048
     Dates: start: 20141206, end: 20150713
  2. NUTRAMIGEN [Concomitant]
     Active Substance: AMINO ACIDS
     Dates: end: 20150701
  3. NUTRITIONAL SUPPLEMENT [Concomitant]
     Active Substance: DIETARY SUPPLEMENT
     Dates: start: 201507

REACTIONS (2)
  - Overdose [None]
  - Vomiting [None]
